FAERS Safety Report 6177985-9 (Version None)
Quarter: 2009Q2

REPORT INFORMATION
  Report Type: 
  Country: None (occurrence: None)
  Receive Date: 20090504
  Receipt Date: 20090427
  Transmission Date: 20091009
  Serious: Yes (Other)
  Sender: FDA-Public Use
  Company Number: US-AMGEN-KDL344829

PATIENT
  Sex: Female

DRUGS (4)
  1. PROCRIT [Suspect]
     Indication: DRUG USE FOR UNKNOWN INDICATION
     Route: 058
  2. PEGASYS [Concomitant]
  3. RIBAVIRIN [Concomitant]
  4. IBUPROFEN [Concomitant]

REACTIONS (3)
  - APHASIA [None]
  - MOBILITY DECREASED [None]
  - MOTOR DYSFUNCTION [None]
